FAERS Safety Report 8725096 (Version 2)
Quarter: 2016Q1

REPORT INFORMATION
  Report Type: Spontaneous
  Country: US (occurrence: US)
  Receive Date: 20120815
  Receipt Date: 20160129
  Transmission Date: 20160526
  Serious: Yes (Other)
  Sender: FDA-Public Use
  Company Number: US-GLAXOSMITHKLINE-A0899140A

PATIENT
  Sex: Female

DRUGS (2)
  1. AVANDIA [Suspect]
     Active Substance: ROSIGLITAZONE MALEATE
     Indication: DIABETES MELLITUS
     Dosage: 4 MG, 1D
     Route: 048
     Dates: start: 2005, end: 2006
  2. AVANDIA [Suspect]
     Active Substance: ROSIGLITAZONE MALEATE
     Dosage: 8 MG, 1D
     Route: 048
     Dates: start: 200506, end: 200603

REACTIONS (8)
  - Cardiac disorder [Unknown]
  - Bone disorder [Unknown]
  - Muscle atrophy [Not Recovered/Not Resolved]
  - Gastric disorder [Unknown]
  - Coronary artery bypass [Unknown]
  - Cardiac operation [Unknown]
  - Lung disorder [Unknown]
  - Rib deformity [Unknown]
